FAERS Safety Report 25823798 (Version 1)
Quarter: 2025Q3

REPORT INFORMATION
  Report Type: Spontaneous
  Country: US (occurrence: US)
  Receive Date: 20250919
  Receipt Date: 20250919
  Transmission Date: 20251020
  Serious: No
  Sender: ABBVIE
  Company Number: US-ABBVIE-6459247

PATIENT
  Age: 57 Year
  Sex: Female

DRUGS (1)
  1. SKYRIZI [Suspect]
     Active Substance: RISANKIZUMAB-RZAA
     Indication: Psoriasis
     Route: 058
     Dates: start: 20250815

REACTIONS (8)
  - Skin fissures [Unknown]
  - Grip strength decreased [Unknown]
  - Inflammation [Unknown]
  - Needle issue [Not Recovered/Not Resolved]
  - Device issue [Not Recovered/Not Resolved]
  - Pain in extremity [Unknown]
  - Haemorrhage [Unknown]
  - Psoriasis [Unknown]

NARRATIVE: CASE EVENT DATE: 20250101
